FAERS Safety Report 10686807 (Version 1)
Quarter: 2015Q1

REPORT INFORMATION
  Report Type: Spontaneous
  Country: FR (occurrence: FR)
  Receive Date: 20150101
  Receipt Date: 20150101
  Transmission Date: 20150720
  Serious: Yes (Life-Threatening, Hospitalization, Other)
  Sender: FDA-Public Use
  Company Number: FR-GLAXOSMITHKLINE-FR2014GSK043140

PATIENT
  Age: 31 Year
  Sex: Female

DRUGS (4)
  1. ZITHROMAX [Concomitant]
     Active Substance: AZITHROMYCIN DIHYDRATE
     Indication: SINUSITIS
     Dosage: UNK
     Dates: start: 20141025
  2. HYDROCORTISONE. [Concomitant]
     Active Substance: HYDROCORTISONE
  3. TAFINLAR [Suspect]
     Active Substance: DABRAFENIB MESYLATE
     Indication: MALIGNANT MELANOMA
     Dosage: 150 MG, BID
     Route: 048
     Dates: start: 20140925, end: 20141101
  4. LEVOTHYROX [Concomitant]
     Active Substance: LEVOTHYROXINE

REACTIONS (7)
  - Pyrexia [Recovered/Resolved]
  - Nausea [Recovering/Resolving]
  - Shock [Recovered/Resolved]
  - Dehydration [Recovered/Resolved]
  - Chills [Recovering/Resolving]
  - Disseminated intravascular coagulation [Recovered/Resolved]
  - Vomiting [Recovering/Resolving]

NARRATIVE: CASE EVENT DATE: 20141029
